FAERS Safety Report 23498676 (Version 1)
Quarter: 2024Q1

REPORT INFORMATION
  Report Type: Spontaneous
  Country: US (occurrence: US)
  Receive Date: 20240207
  Receipt Date: 20240207
  Transmission Date: 20240410
  Serious: No
  Sender: FDA-Public Use
  Company Number: US-TEVA-VS-3152704

PATIENT
  Age: 80 Year
  Sex: Female

DRUGS (1)
  1. AUSTEDO [Suspect]
     Active Substance: DEUTETRABENAZINE
     Indication: Dyskinesia
     Dosage: PRODUCT - NDC / DIN / MA #: 68546-0170-60?TAKE ONE TABLET BY MOUTH IN THE MORNING AND ONE TABLET ...
     Route: 048
     Dates: start: 20240118

REACTIONS (1)
  - Drug ineffective [Unknown]
